FAERS Safety Report 6721851-4 (Version None)
Quarter: 2010Q2

REPORT INFORMATION
  Report Type: 
  Country: None (occurrence: None)
  Receive Date: 20100512
  Receipt Date: 20100505
  Transmission Date: 20101027
  Serious: Yes (Other)
  Sender: FDA-Public Use
  Company Number: US-JNJFOC-20100502038

PATIENT
  Sex: Female
  Weight: 62.6 kg

DRUGS (2)
  1. TYLENOL W/ CODEINE [Suspect]
     Indication: BACK PAIN
     Route: 065
  2. HYDROCODONE BITARTRATE + IBUPROFEN [Concomitant]
     Indication: PAIN
     Route: 065

REACTIONS (3)
  - DIZZINESS [None]
  - HAEMANGIOMA OF LIVER [None]
  - NAUSEA [None]
